FAERS Safety Report 7127321-6 (Version None)
Quarter: 2010Q4

REPORT INFORMATION
  Report Type: 
  Country: None (occurrence: None)
  Receive Date: 20101129
  Receipt Date: 20100407
  Transmission Date: 20110411
  Serious: No
  Sender: FDA-Public Use
  Company Number: US-PFIZER INC-2010045014

PATIENT
  Sex: Male
  Weight: 99.773 kg

DRUGS (5)
  1. VIAGRA [Suspect]
     Indication: ERECTILE DYSFUNCTION
     Dosage: 50 MG, AS NEEDED
     Route: 048
     Dates: start: 20100330
  2. VICODIN [Concomitant]
     Indication: PAIN
     Dosage: UNK
  3. METHOCARBAMOL [Concomitant]
     Dosage: UNK
  4. TYLENOL (CAPLET) [Concomitant]
     Indication: BACK PAIN
     Dosage: UNK
  5. TYLENOL (CAPLET) [Concomitant]
     Indication: NECK PAIN

REACTIONS (1)
  - DRUG INEFFECTIVE [None]
